FAERS Safety Report 4362374-X (Version None)
Quarter: 2004Q2

REPORT INFORMATION
  Report Type: 
  Country: None (occurrence: None)
  Receive Date: 20040521
  Receipt Date: 20020904
  Transmission Date: 20050107
  Serious: Yes (Hospitalization, Other)
  Sender: FDA-Public Use
  Company Number: US-MERCK-0209USA00350

PATIENT
  Age: 56 Year
  Sex: Male
  Weight: 70 kg

DRUGS (7)
  1. DARVOCET-N 100 [Concomitant]
     Route: 065
  2. ASPIRIN [Concomitant]
     Route: 065
  3. LIPITOR [Concomitant]
     Route: 065
  4. METFORMIN [Concomitant]
     Route: 065
  5. ZANTAC [Concomitant]
     Route: 065
  6. VIOXX [Suspect]
     Indication: INFLAMMATION
     Route: 048
  7. VIOXX [Suspect]
     Indication: BACK PAIN
     Route: 048

REACTIONS (21)
  - ABDOMINAL DISCOMFORT [None]
  - ABDOMINAL PAIN UPPER [None]
  - ABSCESS INTESTINAL [None]
  - ATHEROSCLEROSIS [None]
  - CEREBROVASCULAR ACCIDENT [None]
  - CHEST DISCOMFORT [None]
  - DIVERTICULITIS [None]
  - DRUG HYPERSENSITIVITY [None]
  - FALL [None]
  - GASTRITIS [None]
  - HIATUS HERNIA [None]
  - HYPERCHOLESTEROLAEMIA [None]
  - HYPERTENSION [None]
  - INJURY [None]
  - JOINT INJURY [None]
  - LIVER DISORDER [None]
  - MYOCARDIAL INFARCTION [None]
  - NON-CARDIAC CHEST PAIN [None]
  - NON-HODGKIN'S LYMPHOMA [None]
  - SIMPLE PARTIAL SEIZURES [None]
  - TUBERCULOSIS [None]
